FAERS Safety Report 15932078 (Version 4)
Quarter: 2019Q3

REPORT INFORMATION
  Report Type: Report from Study
  Country: CA (occurrence: CA)
  Receive Date: 20190207
  Receipt Date: 20190827
  Transmission Date: 20191004
  Serious: Yes (Other)
  Sender: FDA-Public Use
  Company Number: CA-ROCHE-2259366

PATIENT
  Age: 65 Year
  Sex: Female

DRUGS (5)
  1. METHOTREXATE. [Concomitant]
     Active Substance: METHOTREXATE
  2. ACTEMRA [Suspect]
     Active Substance: TOCILIZUMAB
     Indication: RHEUMATOID ARTHRITIS
     Route: 058
     Dates: start: 20181224, end: 20190410
  3. ESOMEPRAZOLE. [Concomitant]
     Active Substance: ESOMEPRAZOLE MAGNESIUM
  4. LEUCOVORIN [FOLINIC ACID] [Concomitant]
     Active Substance: LEUCOVORIN
  5. PREVACID [Concomitant]
     Active Substance: LANSOPRAZOLE

REACTIONS (6)
  - Fatigue [Unknown]
  - Night sweats [Unknown]
  - Blister [Unknown]
  - Gingival bleeding [Unknown]
  - Oral herpes [Unknown]
  - Headache [Unknown]

NARRATIVE: CASE EVENT DATE: 201903
